FAERS Safety Report 19082377 (Version 4)
Quarter: 2021Q2

REPORT INFORMATION
  Report Type: Spontaneous
  Country: DE (occurrence: DE)
  Receive Date: 20210401
  Receipt Date: 20210512
  Transmission Date: 20210717
  Serious: No
  Sender: FDA-Public Use
  Company Number: DE-LUPIN PHARMACEUTICALS INC.-2021-03813

PATIENT
  Age: 57 Year
  Sex: Male
  Weight: 85 kg

DRUGS (5)
  1. SILDENAFIL?HORMOSAN 50 MG FILMTABLETTEN [Suspect]
     Active Substance: SILDENAFIL CITRATE
     Dosage: 2 DOSAGE FORM
     Route: 065
     Dates: start: 20210312
  2. SILDENAFIL?HORMOSAN 50 MG FILMTABLETTEN [Suspect]
     Active Substance: SILDENAFIL CITRATE
     Dosage: TOOK ANOTHER TABLET FROM AN OLD PACKAGE
     Route: 065
     Dates: start: 20210311
  3. SILDENAFIL?HORMOSAN 50 MG FILMTABLETTEN [Suspect]
     Active Substance: SILDENAFIL CITRATE
     Dosage: 1 DOSAGE FORM
     Route: 065
     Dates: start: 20210310
  4. SILDENAFIL?HORMOSAN 50 MG FILMTABLETTEN [Suspect]
     Active Substance: SILDENAFIL CITRATE
     Indication: ERECTILE DYSFUNCTION
     Dosage: UNK (FOR LAST 3 YEARS)
     Route: 065
     Dates: start: 2018
  5. SILDENAFIL?HORMOSAN 50 MG FILMTABLETTEN [Suspect]
     Active Substance: SILDENAFIL CITRATE
     Dosage: 1 DOSAGE FORM
     Route: 065
     Dates: start: 20210311

REACTIONS (4)
  - Product quality issue [Unknown]
  - Drug ineffective [Recovered/Resolved]
  - Blood cholesterol increased [Unknown]
  - Extra dose administered [Unknown]

NARRATIVE: CASE EVENT DATE: 20210224
